FAERS Safety Report 10070314 (Version 2)
Quarter: 2014Q2

REPORT INFORMATION
  Report Type: Spontaneous
  Country: US (occurrence: US)
  Receive Date: 20140410
  Receipt Date: 20140410
  Transmission Date: 20141212
  Serious: Yes (Death)
  Sender: FDA-Public Use
  Company Number: US-GE HEALTHCARE MEDICAL DIAGNOSTICS-OSCN-PR-0902S-0127

PATIENT
  Age: 70 Year
  Sex: Male

DRUGS (3)
  1. MAGNEVIST [Suspect]
     Indication: PRODUCT USED FOR UNKNOWN INDICATION
     Route: 042
     Dates: start: 20021126, end: 20021126
  2. MAGNEVIST [Suspect]
     Route: 042
     Dates: start: 20030408, end: 20030408
  3. MAGNEVIST [Suspect]
     Route: 042
     Dates: start: 20040113, end: 20040113

REACTIONS (1)
  - Nephrogenic systemic fibrosis [Fatal]
